FAERS Safety Report 10134313 (Version 1)
Quarter: 2014Q2

REPORT INFORMATION
  Report Type: Spontaneous
  Country: GB (occurrence: GB)
  Receive Date: 20140428
  Receipt Date: 20140428
  Transmission Date: 20141212
  Serious: Yes (Life-Threatening, Hospitalization)
  Sender: FDA-Public Use
  Company Number: GB-TEVA-478084ISR

PATIENT
  Age: 60 Year
  Sex: Female
  Weight: 100 kg

DRUGS (7)
  1. LANSOPRAZOLE [Suspect]
  2. BENDROFLUMETHIAZIDE [Concomitant]
     Dates: start: 20131231, end: 20140128
  3. DOMPERIDONE [Concomitant]
     Dates: start: 20131230, end: 20140127
  4. DOXAZOSIN [Concomitant]
     Dates: start: 20131231, end: 20140128
  5. ACIDEX [Concomitant]
     Dates: start: 20131218, end: 20140115
  6. RAMIPRIL [Concomitant]
     Dates: start: 20131231, end: 20140128
  7. SANDO-K [Concomitant]
     Dates: start: 20140113, end: 20140210

REACTIONS (2)
  - Hypomagnesaemia [Recovered/Resolved]
  - Hypocalcaemia [Recovered/Resolved]
